FAERS Safety Report 9703236 (Version 2)
Quarter: 2013Q4

REPORT INFORMATION
  Report Type: Spontaneous
  Country: US (occurrence: US)
  Receive Date: 20131122
  Receipt Date: 20131218
  Transmission Date: 20140711
  Serious: Yes (Hospitalization)
  Sender: FDA-Public Use
  Company Number: US-JNJFOC-20131106996

PATIENT
  Age: 59 Year
  Sex: Female
  Weight: 49.9 kg

DRUGS (17)
  1. DURAGESIC [Suspect]
     Indication: PAIN
     Route: 062
  2. DURAGESIC [Suspect]
     Indication: PAIN
     Route: 062
  3. FENTANYL [Suspect]
     Indication: PAIN
     Route: 048
  4. WATSON FENTANYL TRANSDERMAL SYSTEM [Suspect]
     Indication: PAIN
     Route: 062
  5. MYLAN FENTANYL TRANSDERMAL SYSTEM [Suspect]
     Indication: PAIN
     Route: 062
  6. DILAUDID [Concomitant]
     Indication: PAIN
     Route: 065
  7. NORCO [Concomitant]
     Indication: PAIN
     Route: 065
  8. VITAMIN B12 [Concomitant]
     Indication: PAIN
     Dosage: EVERY OTHER DAY
     Route: 030
     Dates: start: 2004
  9. OXYCONTIN [Concomitant]
     Indication: PAIN
     Dosage: AS NECESSARY EVERY 2 TO 3 HOURS
     Route: 048
     Dates: start: 1999
  10. XANAX [Concomitant]
     Indication: ANXIETY
     Dosage: AS NEEDED
     Route: 048
     Dates: start: 1998
  11. XANAX [Concomitant]
     Indication: PAIN
     Dosage: AS NEEDED
     Route: 048
     Dates: start: 1998
  12. RITALIN [Concomitant]
     Indication: PAIN
     Route: 048
     Dates: start: 1998
  13. PREMARIN [Concomitant]
     Indication: BONE DISORDER
     Route: 048
     Dates: start: 1998
  14. OXYCODONE [Concomitant]
     Indication: PAIN
     Dosage: 1-2 ML EVERY 2-4 HOURS AS NEEDED
     Route: 048
     Dates: start: 2010
  15. DURAGESIC [Suspect]
     Indication: PAIN
     Dosage: 24 TO 48 HRS AS NEEDED
     Route: 062
  16. DURAGESIC [Suspect]
     Indication: PAIN
     Route: 062
  17. DURAGESIC [Suspect]
     Indication: PAIN
     Route: 062

REACTIONS (16)
  - Diverticulitis [Unknown]
  - Spinal fusion surgery [Unknown]
  - Drug dose omission [Unknown]
  - Nausea [Unknown]
  - Drug ineffective [Not Recovered/Not Resolved]
  - Wrong technique in drug usage process [Not Recovered/Not Resolved]
  - Adverse event [Unknown]
  - Pruritus [Unknown]
  - Rash [Unknown]
  - General physical health deterioration [Not Recovered/Not Resolved]
  - Abnormal loss of weight [Not Recovered/Not Resolved]
  - Product quality issue [Unknown]
  - Wrong technique in drug usage process [Not Recovered/Not Resolved]
  - Tremor [Unknown]
  - Drug metabolising enzyme increased [Not Recovered/Not Resolved]
  - Hypokalaemia [Unknown]
